FAERS Safety Report 10983375 (Version 1)
Quarter: 2015Q2

REPORT INFORMATION
  Report Type: Spontaneous
  Country: US (occurrence: None)
  Receive Date: 20150402
  Receipt Date: 20150402
  Transmission Date: 20150821
  Serious: Yes (Disabling, Other)
  Sender: FDA-Public Use
  Company Number: None

PATIENT
  Age: 31 Year

DRUGS (1)
  1. MIRENA [Suspect]
     Active Substance: LEVONORGESTREL

REACTIONS (8)
  - Hyperacusis [None]
  - Scar [None]
  - Photophobia [None]
  - Headache [None]
  - Acne [None]
  - Migraine [None]
  - Educational problem [None]
  - Social avoidant behaviour [None]
